FAERS Safety Report 5847201-3 (Version None)
Quarter: 2008Q3

REPORT INFORMATION
  Report Type: 
  Country: None (occurrence: None)
  Receive Date: 20080815
  Receipt Date: 20080812
  Transmission Date: 20090109
  Serious: Yes (Death, Hospitalization)
  Sender: FDA-Public Use
  Company Number: PHEH2007US16187

PATIENT
  Sex: Male
  Weight: 45 kg

DRUGS (2)
  1. EXJADE [Suspect]
     Indication: THALASSAEMIA BETA
     Dosage: 125 MG, QD
     Route: 048
     Dates: start: 20070717
  2. EXJADE [Suspect]
     Indication: SERUM FERRITIN INCREASED

REACTIONS (6)
  - BLOOD BILIRUBIN INCREASED [None]
  - BLOOD CREATININE INCREASED [None]
  - COMA [None]
  - HEPATIC FAILURE [None]
  - RENAL FAILURE [None]
  - SHOCK [None]
